FAERS Safety Report 8609625-0 (Version None)
Quarter: 2012Q3

REPORT INFORMATION
  Report Type: 
  Country: None (occurrence: None)
  Receive Date: 20120810
  Receipt Date: 20120810
  Transmission Date: 20120928
  Serious: Yes (Other)
  Sender: FDA-Public Use
  Company Number: None

PATIENT
  Sex: Female

DRUGS (2)
  1. TEMAZEPAM [Suspect]
     Indication: INSOMNIA
     Dates: start: 20120222, end: 20120808
  2. TEMAZEPAM [Suspect]
     Indication: MAJOR DEPRESSION
     Dates: start: 20120222, end: 20120808

REACTIONS (1)
  - DRUG INEFFECTIVE [None]
